FAERS Safety Report 14009118 (Version 1)
Quarter: 2017Q3

REPORT INFORMATION
  Report Type: Spontaneous
  Country: US (occurrence: US)
  Receive Date: 20170925
  Receipt Date: 20170925
  Transmission Date: 20171128
  Serious: No
  Sender: FDA-Public Use
  Company Number: US-GE HEALTHCARE LIFE SCIENCES-2017CSU002952

PATIENT
  Sex: Male

DRUGS (1)
  1. DATSCAN [Suspect]
     Active Substance: IODINE\IOFLUPANE I-123
     Indication: MULTIPLE SYSTEM ATROPHY
     Dosage: UNK, SINGLE
     Route: 065

REACTIONS (2)
  - False positive investigation result [Unknown]
  - No adverse event [Recovered/Resolved]
